FAERS Safety Report 9542438 (Version 2)
Quarter: 2013Q3

REPORT INFORMATION
  Report Type: Spontaneous
  Country: NZ (occurrence: PG)
  Receive Date: 20130923
  Receipt Date: 20130923
  Transmission Date: 20140515
  Serious: Yes (Other)
  Sender: FDA-Public Use
  Company Number: NZ-ABBVIE-11P-118-0852165-00

PATIENT
  Sex: Female

DRUGS (1)
  1. LUCRIN [Suspect]
     Indication: PRECOCIOUS PUBERTY
     Dates: start: 2009

REACTIONS (4)
  - Hepatitis [Unknown]
  - Precocious puberty [Unknown]
  - Ovarian cyst [Unknown]
  - Off label use [Unknown]
